FAERS Safety Report 8444593-6 (Version None)
Quarter: 2012Q2

REPORT INFORMATION
  Report Type: 
  Country: None (occurrence: None)
  Receive Date: 20120618
  Receipt Date: 20120611
  Transmission Date: 20120825
  Serious: Yes (Other)
  Sender: FDA-Public Use
  Company Number: NO-ASTRAZENECA-2012SE38433

PATIENT
  Age: 69 Year
  Sex: Female

DRUGS (1)
  1. ENTOCORT EC [Suspect]
     Indication: AUTOIMMUNE HEPATITIS
     Route: 048
     Dates: start: 20110827, end: 20111202

REACTIONS (6)
  - PRESYNCOPE [None]
  - DIZZINESS [None]
  - NAUSEA [None]
  - FLUSHING [None]
  - OFF LABEL USE [None]
  - HEADACHE [None]
